FAERS Safety Report 19575002 (Version 1)
Quarter: 2021Q3

REPORT INFORMATION
  Report Type: Spontaneous
  Country: NL (occurrence: NL)
  Receive Date: 20210719
  Receipt Date: 20210719
  Transmission Date: 20211014
  Serious: Yes (Other)
  Sender: FDA-Public Use
  Company Number: NL-TEVA-2021-NL-1932943

PATIENT
  Age: 40 Year
  Sex: Female

DRUGS (3)
  1. DEPO?PROVERA [Concomitant]
     Active Substance: MEDROXYPROGESTERONE ACETATE
     Dosage: 150 MG/ML (MILLIGRAM PER MILLILITER)THERAPY START DATE :THERAPY END DATE :ASKU
  2. METFORMINE TABLET   500MG / BRAND NAME NOT SPECIFIED [Suspect]
     Active Substance: METFORMIN HYDROCHLORIDE
     Indication: TYPE 2 DIABETES MELLITUS
     Dosage: 1000 MILLIGRAM DAILY; 2X A DAY 1 TABLETTHERAPY END DATE :ASKU
     Dates: start: 20210611
  3. PANTOPRAZOL TABLET MSR 40MG / BRAND NAME NOT SPECIFIED [Concomitant]
     Active Substance: PANTOPRAZOLE
     Dosage: 40 MG (MILLIGRAM)THERAPY START DATE :THERAPY END DATE:ASKU

REACTIONS (1)
  - Urinary retention [Recovering/Resolving]

NARRATIVE: CASE EVENT DATE: 20210612
